FAERS Safety Report 23857126 (Version 1)
Quarter: 2024Q2

REPORT INFORMATION
  Report Type: Other
  Country: TR (occurrence: TR)
  Receive Date: 20240515
  Receipt Date: 20240515
  Transmission Date: 20240716
  Serious: Yes (Hospitalization, Other)
  Sender: FDA-Public Use
  Company Number: TR-AptaPharma Inc.-2156997

PATIENT
  Age: 24 Year
  Sex: Male

DRUGS (3)
  1. IBUPROFEN [Suspect]
     Active Substance: IBUPROFEN
     Indication: Myocarditis
     Route: 065
  2. ASPIRIN [Suspect]
     Active Substance: ASPIRIN
     Route: 065
  3. COLCHICINE [Concomitant]
     Active Substance: COLCHICINE
     Route: 065

REACTIONS (2)
  - Kounis syndrome [Unknown]
  - Product use in unapproved indication [Unknown]
